FAERS Safety Report 5466768-0 (Version None)
Quarter: 2007Q3

REPORT INFORMATION
  Report Type: 
  Country: None (occurrence: None)
  Receive Date: 20070925
  Receipt Date: 20070912
  Transmission Date: 20080115
  Serious: Yes (Hospitalization, Other)
  Sender: FDA-Public Use
  Company Number: US-ELI_LILLY_AND_COMPANY-US200707005710

PATIENT
  Age: 37 Year
  Sex: Male

DRUGS (6)
  1. VALIUM [Concomitant]
     Dosage: 10 MG, UNK
     Dates: start: 20020412, end: 20020412
  2. BENADRYL [Concomitant]
     Dosage: 50 MG, UNK
     Route: 048
     Dates: start: 20020412, end: 20020412
  3. TAGAMET [Concomitant]
     Dosage: 300 MG, UNK
     Route: 048
     Dates: start: 20020412, end: 20020412
  4. ZYPREXA [Suspect]
     Indication: BIPOLAR DISORDER
     Dosage: 5 MG, UNK
     Route: 048
     Dates: start: 20011201, end: 20020401
  5. LITHIUM [Concomitant]
     Indication: BIPOLAR DISORDER
  6. NAVANE [Concomitant]
     Indication: BIPOLAR DISORDER

REACTIONS (12)
  - AUTONOMIC NEUROPATHY [None]
  - BLOOD CREATININE INCREASED [None]
  - BLOOD GLUCOSE ABNORMAL [None]
  - CORONARY ARTERY DISEASE [None]
  - DIABETIC KETOACIDOSIS [None]
  - DRUG INEFFECTIVE [None]
  - IMPAIRED GASTRIC EMPTYING [None]
  - MULTI-ORGAN FAILURE [None]
  - PANCREATIC ENZYMES ABNORMAL [None]
  - STARVATION [None]
  - TYPE 1 DIABETES MELLITUS [None]
  - TYPE 2 DIABETES MELLITUS [None]
